FAERS Safety Report 10215225 (Version 3)
Quarter: 2014Q2

REPORT INFORMATION
  Report Type: Report from Study
  Country: VE (occurrence: VE)
  Receive Date: 20140603
  Receipt Date: 20140624
  Transmission Date: 20141212
  Serious: Yes (Hospitalization)
  Sender: FDA-Public Use
  Company Number: PHHY2014VE067192

PATIENT
  Age: 60 Year
  Sex: Female

DRUGS (3)
  1. GLIVEC [Suspect]
     Indication: ACUTE LYMPHOCYTIC LEUKAEMIA
     Dosage: 300 MG, DAILY
     Route: 048
     Dates: start: 2006
  2. GLIVEC [Suspect]
     Dosage: 100 MG, DAILY
     Route: 048
  3. EXJADE [Suspect]
     Indication: IRON OVERLOAD
     Dosage: 500 MG, DAILY
     Route: 048

REACTIONS (3)
  - Bronchitis [Unknown]
  - Osteoporosis [Unknown]
  - Blood iron increased [Recovered/Resolved]
